FAERS Safety Report 6125502 (Version 14)
Quarter: 2013Q3

REPORT INFORMATION
  Report Type: Spontaneous
  Country: US (occurrence: US)
  Receive Date: 20060912
  Receipt Date: 20130808
  Transmission Date: 20140515
  Serious: Yes (Hospitalization, Other)
  Sender: FDA-Public Use
  Company Number: PHEH2006US11216

PATIENT
  Age: 59 Year
  Sex: Female

DRUGS (20)
  1. AREDIA [Suspect]
     Dates: start: 200109
  2. AREDIA [Suspect]
     Dates: start: 20010620
  3. ZOMETA [Suspect]
     Dates: start: 200206, end: 200410
  4. FENTANYL [Concomitant]
  5. PROMETHAZINE [Concomitant]
  6. TAMOXIFEN [Concomitant]
  7. HYDROMORPHONE [Concomitant]
  8. ALBUTEROL [Concomitant]
  9. LISINOPRIL [Concomitant]
  10. QVAR [Concomitant]
  11. AFRIN NASAL SPRAY [Concomitant]
  12. PENICILLIN G POTASSIUM [Concomitant]
  13. HYDROCODONE [Concomitant]
  14. ACETAMINOPHEN [Concomitant]
  15. ANZEMET [Concomitant]
  16. DILAUDID [Concomitant]
  17. VICODIN [Concomitant]
  18. PERIDEX [Concomitant]
  19. CLINDAMYCIN [Concomitant]
     Dosage: 150 MG, QID
  20. CEPHALEXIN [Concomitant]
     Dosage: 500 MG, UNK

REACTIONS (82)
  - Metastases to bone [Unknown]
  - Retinopathy [Unknown]
  - Urinary incontinence [Unknown]
  - Hypertension [Unknown]
  - Hyperlipidaemia [Unknown]
  - Osteoarthritis [Unknown]
  - Skin ulcer [Unknown]
  - Abscess [Unknown]
  - Laceration [Unknown]
  - Exposed bone in jaw [Unknown]
  - Fistula [Unknown]
  - Oral discharge [Unknown]
  - ECG signs of ventricular hypertrophy [Unknown]
  - Rheumatoid arthritis [Unknown]
  - Paraesthesia [Unknown]
  - Aspartate aminotransferase increased [Unknown]
  - Osteoradionecrosis [Unknown]
  - Ulcer [Unknown]
  - Pain in jaw [Unknown]
  - Nasopharyngitis [Unknown]
  - Nasal congestion [Unknown]
  - Breast cancer metastatic [Unknown]
  - Metastases to chest wall [Unknown]
  - Thyroid neoplasm [Unknown]
  - Inflammation [Unknown]
  - Osteosclerosis [Unknown]
  - Bone fragmentation [Unknown]
  - Breast calcifications [Unknown]
  - Pleural fibrosis [Unknown]
  - Osteonecrosis [Unknown]
  - Lower extremity mass [Unknown]
  - Spinal osteoarthritis [Unknown]
  - Skin discolouration [Unknown]
  - Vitreous detachment [Unknown]
  - Tuberculosis [Unknown]
  - Glaucoma [Unknown]
  - Abdominal pain [Unknown]
  - Mucosal ulceration [Unknown]
  - Macrogenia [Unknown]
  - Impaired healing [Unknown]
  - Wound [Unknown]
  - Dizziness [Unknown]
  - Hepatic steatosis [Unknown]
  - Diverticulum intestinal [Unknown]
  - Renal cyst [Unknown]
  - Device malfunction [Not Recovered/Not Resolved]
  - Asthma [Unknown]
  - Fall [Unknown]
  - Osteonecrosis of jaw [Not Recovered/Not Resolved]
  - Gingival bleeding [Unknown]
  - Tenderness [Unknown]
  - Purulence [Unknown]
  - Blister [Unknown]
  - Excessive granulation tissue [Unknown]
  - Temporomandibular joint syndrome [Unknown]
  - Alveolar osteitis [Unknown]
  - Anxiety [Unknown]
  - Bone lesion [Unknown]
  - Tooth injury [Unknown]
  - Gingivitis [Unknown]
  - Gingival oedema [Unknown]
  - Gingival swelling [Unknown]
  - Gingival erythema [Unknown]
  - Osteomyelitis [Unknown]
  - Gingival pain [Unknown]
  - Decreased interest [Unknown]
  - Sensitivity of teeth [Unknown]
  - Pain [Recovering/Resolving]
  - Hypoaesthesia [Recovering/Resolving]
  - Actinomycosis [Unknown]
  - Bone swelling [Unknown]
  - Fungal infection [Unknown]
  - Bruxism [Unknown]
  - General physical health deterioration [Unknown]
  - Radius fracture [Unknown]
  - Arthritis [Unknown]
  - Seasonal allergy [Unknown]
  - Musculoskeletal pain [Recovering/Resolving]
  - Chest pain [Recovering/Resolving]
  - Muscle strain [Recovering/Resolving]
  - Contusion [Unknown]
  - Ligament sprain [Unknown]
